FAERS Safety Report 7507082-9 (Version None)
Quarter: 2011Q2

REPORT INFORMATION
  Report Type: 
  Country: None (occurrence: None)
  Receive Date: 20110526
  Receipt Date: 20110523
  Transmission Date: 20111010
  Serious: No
  Sender: FDA-Public Use
  Company Number: US-TEVA-283502USA

PATIENT
  Sex: Female
  Weight: 104.42 kg

DRUGS (7)
  1. PLAN B ONE-STEP [Suspect]
     Indication: POST COITAL CONTRACEPTION
     Dosage: 1.5 MILLIGRAM;
     Route: 048
  2. SYNTHROID [Concomitant]
     Indication: HYPOTHYROIDISM
     Dosage: 100 MICROGRAM;
  3. HYDROCHLOROTHIAZIDE [Concomitant]
     Indication: DIURETIC THERAPY
     Dosage: 25 MILLIGRAM;
  4. HYDROCHLOROTHIAZIDE [Concomitant]
     Indication: HYPERTENSION
  5. PROZAC [Concomitant]
     Indication: DEPRESSION
     Dosage: 20 MILLIGRAM;
  6. LISINOPRIL [Concomitant]
     Indication: HYPERTENSION
  7. FLEXERIL [Concomitant]
     Indication: INSOMNIA
     Dosage: 10 MILLIGRAM;

REACTIONS (2)
  - MENORRHAGIA [None]
  - DYSMENORRHOEA [None]
